FAERS Safety Report 25451680 (Version 1)
Quarter: 2025Q2

REPORT INFORMATION
  Report Type: Report from Study
  Country: US (occurrence: US)
  Receive Date: 20250618
  Receipt Date: 20250618
  Transmission Date: 20250716
  Serious: Yes (Hospitalization)
  Sender: EISAI
  Company Number: US-Eisai-EC-2025-191049

PATIENT
  Age: 71 Year
  Sex: Female

DRUGS (3)
  1. LENVIMA [Suspect]
     Active Substance: LENVATINIB
     Indication: Uterine cancer
     Dates: start: 20250318, end: 202503
  2. LENVIMA [Suspect]
     Active Substance: LENVATINIB
     Dates: start: 20250401, end: 20250510
  3. KEYTRUDA [Concomitant]
     Active Substance: PEMBROLIZUMAB

REACTIONS (4)
  - Chromaturia [Not Recovered/Not Resolved]
  - Liver injury [Not Recovered/Not Resolved]
  - Renal disorder [Not Recovered/Not Resolved]
  - Cardiac disorder [Recovering/Resolving]

NARRATIVE: CASE EVENT DATE: 20250501
